FAERS Safety Report 6314647-9 (Version None)
Quarter: 2009Q3

REPORT INFORMATION
  Report Type: 
  Country: None (occurrence: None)
  Receive Date: 20090817
  Receipt Date: 20090817
  Transmission Date: 20100115
  Serious: Yes (Other)
  Sender: FDA-Public Use
  Company Number: None

PATIENT
  Age: 45 Year
  Sex: Female
  Weight: 58.9676 kg

DRUGS (1)
  1. THYROID TAB [Suspect]
     Indication: HYPOTHYROIDISM
     Dosage: 15 MG 1 IN AM PO
     Route: 048
     Dates: start: 20090712, end: 20090811

REACTIONS (2)
  - HYPOTHYROIDISM [None]
  - PRODUCT FORMULATION ISSUE [None]
